FAERS Safety Report 4864037-0 (Version None)
Quarter: 2005Q4

REPORT INFORMATION
  Report Type: 
  Country: None (occurrence: None)
  Receive Date: 20051222
  Receipt Date: 20051214
  Transmission Date: 20060501
  Serious: Yes (Death, Hospitalization)
  Sender: FDA-Public Use
  Company Number: DE-BRISTOL-MYERS SQUIBB COMPANY-13226063

PATIENT
  Age: 53 Year
  Sex: Female

DRUGS (5)
  1. ENDOXAN [Suspect]
     Indication: BREAST CANCER
     Route: 042
     Dates: end: 20051129
  2. UROMITEXAN [Suspect]
     Indication: BREAST CANCER
     Route: 042
     Dates: end: 20051129
  3. TAXOTERE [Suspect]
     Indication: BREAST CANCER
     Route: 042
     Dates: end: 20051129
  4. ADRIAMYCIN [Suspect]
     Indication: BREAST CANCER
     Route: 042
     Dates: end: 20051129
  5. ARANESP [Suspect]
     Indication: BREAST CANCER
     Route: 058
     Dates: end: 20051129

REACTIONS (5)
  - LEUKOPENIA [None]
  - MULTI-ORGAN FAILURE [None]
  - NAUSEA [None]
  - SEPSIS [None]
  - VOMITING [None]
